FAERS Safety Report 19094849 (Version 1)
Quarter: 2021Q2

REPORT INFORMATION
  Report Type: Spontaneous
  Country: CN (occurrence: CN)
  Receive Date: 20210405
  Receipt Date: 20210405
  Transmission Date: 20210717
  Serious: Yes (Life-Threatening)
  Sender: FDA-Public Use
  Company Number: CN-B.I. PHARMACEUTICALS,INC./RIDGEFIELD-2021-BI-095040

PATIENT
  Age: 67 Year
  Sex: Male

DRUGS (4)
  1. 7?(2,3?DIHYDROXYPROPYL)THEOPHYLLINE [Concomitant]
     Indication: DYSPNOEA
     Dosage: POWDER INJECTION
     Route: 042
     Dates: start: 20210322, end: 20210401
  2. ATROVENT [Suspect]
     Active Substance: IPRATROPIUM BROMIDE
     Indication: DYSPNOEA
     Route: 055
     Dates: start: 20210330, end: 20210330
  3. BUDESONIDE AND FORMOTEROL [Suspect]
     Active Substance: BUDESONIDE\FORMOTEROL
     Indication: DYSPNOEA
     Route: 055
     Dates: start: 20210330, end: 20210330
  4. TERBUTALINE SULPHATE [Suspect]
     Active Substance: TERBUTALINE SULFATE
     Indication: DYSPNOEA
     Dosage: ATOMIZING SOLUTION
     Route: 055
     Dates: start: 20210330, end: 20210330

REACTIONS (3)
  - Palpitations [Recovering/Resolving]
  - Dyspnoea [Recovering/Resolving]
  - Tremor [Recovering/Resolving]

NARRATIVE: CASE EVENT DATE: 20210330
